FAERS Safety Report 8353996-X (Version None)
Quarter: 2012Q2

REPORT INFORMATION
  Report Type: 
  Country: None (occurrence: None)
  Receive Date: 20120511
  Receipt Date: 20120504
  Transmission Date: 20120825
  Serious: Yes (Other)
  Sender: FDA-Public Use
  Company Number: US-ASTRAZENECA-2012SE29209

PATIENT
  Age: 63 Year
  Sex: Female

DRUGS (1)
  1. ZESTRIL [Suspect]
     Route: 048

REACTIONS (12)
  - HYPOTHYROIDISM [None]
  - CORONARY ARTERY DISEASE [None]
  - DIABETES MELLITUS [None]
  - PAIN [None]
  - COUGH [None]
  - RESTLESS LEGS SYNDROME [None]
  - GASTROOESOPHAGEAL REFLUX DISEASE [None]
  - MYOCARDIAL INFARCTION [None]
  - DIABETIC RETINOPATHY [None]
  - HIATUS HERNIA [None]
  - HYPERLIPIDAEMIA [None]
  - HYPERTENSION [None]
